FAERS Safety Report 5067511-X (Version None)
Quarter: 2006Q3

REPORT INFORMATION
  Report Type: 
  Country: None (occurrence: None)
  Receive Date: 20060713
  Receipt Date: 20060626
  Transmission Date: 20061208
  Serious: Yes (Other)
  Sender: FDA-Public Use
  Company Number: 246055

PATIENT
  Age: 57 Year
  Sex: Female
  Weight: 98.4 kg

DRUGS (8)
  1. ACTIVELLA [Suspect]
     Indication: MENOPAUSAL SYMPTOMS
     Dosage: 1 TAB, ORAL
     Route: 048
     Dates: start: 20020903, end: 20030528
  2. PREMARIN [Suspect]
     Indication: MENOPAUSAL SYMPTOMS
     Dates: start: 19930101, end: 19960101
  3. PROVERA [Suspect]
     Indication: MENOPAUSAL SYMPTOMS
     Dates: start: 19930101, end: 19960101
  4. MEDROXYPROGESTERONE [Suspect]
     Indication: MENOPAUSAL SYMPTOMS
     Dates: start: 19991001, end: 19991101
  5. ESTRATEST H.S. [Suspect]
     Indication: MENOPAUSAL SYMPTOMS
     Dates: start: 19991001, end: 19991101
  6. PREMPRO [Suspect]
     Indication: MENOPAUSAL SYMPTOMS
     Dosage: 0.625 MG / 2.5 MG TABLET
     Dates: start: 19960101, end: 20020801
  7. COVERA-HS [Concomitant]
  8. LODINE XL [Concomitant]

REACTIONS (1)
  - BREAST CANCER [None]
